FAERS Safety Report 8890721 (Version 3)
Quarter: 2012Q4

REPORT INFORMATION
  Report Type: 
  Country: DE (occurrence: DE)
  Receive Date: 20121106
  Receipt Date: 20121228
  Transmission Date: 20130627
  Serious: Yes (Hospitalization, Other)
  Sender: FDA-Public Use
  Company Number: DE-VERTEX PHARMACEUTICAL INC.-2012-024123

PATIENT
  Age: 64 Year
  Sex: Female
  Weight: 90 kg

DRUGS (7)
  1. INCIVO [Suspect]
     Indication: HEPATITIS C
     Dosage: Dosage Form: Tablet
     Route: 048
     Dates: start: 20121017, end: 20121025
  2. INCIVO [Suspect]
     Indication: CHRONIC HEPATITIS C
  3. INCIVO [Suspect]
     Indication: PRODUCT USED FOR UNKNOWN INDICATION
  4. PEGINTERFERON ALFA [Suspect]
     Indication: CHRONIC HEPATITIS C
     Dosage: Dosage Form: Unspecified
     Route: 058
     Dates: start: 20121017, end: 20121024
  5. RIBAVIRIN [Suspect]
     Indication: CHRONIC HEPATITIS C
     Dosage: Dosage Form: Unspecified
     Route: 048
     Dates: start: 20121017, end: 20121025
  6. BISOPROLOL [Concomitant]
     Indication: PRODUCT USED FOR UNKNOWN INDICATION
     Dosage: Dosage Form: Unspecified
     Route: 065
  7. PANTOZOL [Concomitant]
     Indication: PRODUCT USED FOR UNKNOWN INDICATION
     Dosage: Dosage Form: Unspecified
     Route: 065

REACTIONS (3)
  - Haemolytic uraemic syndrome [Recovered/Resolved]
  - Renal failure [Recovered/Resolved]
  - Nausea [Recovered/Resolved]
